FAERS Safety Report 25525383 (Version 1)
Quarter: 2025Q3

REPORT INFORMATION
  Report Type: Spontaneous
  Country: US (occurrence: US)
  Receive Date: 20250707
  Receipt Date: 20250707
  Transmission Date: 20251020
  Serious: Yes (Death)
  Sender: ROCHE
  Company Number: US-ROCHE-10000329705

PATIENT

DRUGS (2)
  1. RITUXIMAB [Suspect]
     Active Substance: RITUXIMAB
     Indication: Neuromyelitis optica spectrum disorder
     Route: 065
  2. RITUXIMAB [Suspect]
     Active Substance: RITUXIMAB
     Indication: Multiple sclerosis

REACTIONS (3)
  - COVID-19 [Fatal]
  - Organising pneumonia [Unknown]
  - Rhinovirus infection [Unknown]
